FAERS Safety Report 17835725 (Version 1)
Quarter: 2020Q2

REPORT INFORMATION
  Report Type: Spontaneous
  Country: IT (occurrence: IT)
  Receive Date: 20200528
  Receipt Date: 20200528
  Transmission Date: 20200714
  Serious: Yes (Hospitalization)
  Sender: FDA-Public Use
  Company Number: NVSC2020IT146207

PATIENT
  Age: 71 Year
  Sex: Female

DRUGS (6)
  1. LEXOTAN [Concomitant]
     Active Substance: BROMAZEPAM
     Indication: PRODUCT USED FOR UNKNOWN INDICATION
     Dosage: 5 GTT
     Route: 065
  2. IDROQUARK [Concomitant]
     Active Substance: HYDROCHLOROTHIAZIDE\RAMIPRIL
     Indication: PRODUCT USED FOR UNKNOWN INDICATION
     Dosage: 4 G/100 ML GOCCE ORALI, SOLUZIONE
     Route: 065
  3. QUARK [Concomitant]
     Active Substance: RAMIPRIL
     Indication: PRODUCT USED FOR UNKNOWN INDICATION
     Dosage: UNK
     Route: 065
  4. CEFTRIAXONE. [Suspect]
     Active Substance: CEFTRIAXONE
     Indication: CHRONIC OBSTRUCTIVE PULMONARY DISEASE
     Dosage: 1 DF, TOTAL
     Route: 030
     Dates: start: 20191205, end: 20191205
  5. FOSTER [Concomitant]
     Active Substance: BECLOMETHASONE\FORMOTEROL
     Indication: PRODUCT USED FOR UNKNOWN INDICATION
     Dosage: UNK
     Route: 065
  6. TALOFEN [Concomitant]
     Active Substance: PROMAZINE HYDROCHLORIDE
     Indication: PRODUCT USED FOR UNKNOWN INDICATION
     Dosage: 3 GTT (4 G/100 ML GOCCE ORALI, SOLUZIONE)
     Route: 065

REACTIONS (4)
  - Urticaria [Unknown]
  - Medication error [Unknown]
  - Hypotension [Unknown]
  - Respiratory fatigue [Unknown]

NARRATIVE: CASE EVENT DATE: 20191205
